FAERS Safety Report 7349845-9 (Version None)
Quarter: 2011Q1

REPORT INFORMATION
  Report Type: 
  Country: None (occurrence: None)
  Receive Date: 20110314
  Receipt Date: 20110307
  Transmission Date: 20110831
  Serious: No
  Sender: FDA-Public Use
  Company Number: US-ROXANE LABORATORIES, INC.-2011-RO-00286RO

PATIENT
  Sex: Male

DRUGS (2)
  1. REGLAN [Suspect]
     Dates: start: 20080501, end: 20100101
  2. METOCLOPRAMIDE HCL [Suspect]
     Dates: start: 20080501, end: 20100101

REACTIONS (1)
  - TARDIVE DYSKINESIA [None]
